FAERS Safety Report 11427319 (Version 1)
Quarter: 2015Q3

REPORT INFORMATION
  Report Type: Spontaneous
  Country: US (occurrence: US)
  Receive Date: 20150827
  Receipt Date: 20150827
  Transmission Date: 20151125
  Serious: No
  Sender: FDA-Public Use
  Company Number: US-SA-2014SA160618

PATIENT

DRUGS (1)
  1. FABRAZYME [Suspect]
     Active Substance: AGALSIDASE BETA
     Route: 042
     Dates: start: 2013

REACTIONS (2)
  - Proteinuria [Unknown]
  - Globotriaosylceramide increased [Unknown]
